FAERS Safety Report 7372096-9 (Version None)
Quarter: 2011Q1

REPORT INFORMATION
  Report Type: 
  Country: None (occurrence: None)
  Receive Date: 20110314
  Receipt Date: 20110225
  Transmission Date: 20110831
  Serious: Yes (Other)
  Sender: FDA-Public Use
  Company Number: 2011SP009259

PATIENT
  Age: 72 Year
  Sex: Female
  Weight: 58.0604 kg

DRUGS (6)
  1. WARFARIN [Concomitant]
  2. PRAVASTATIN [Suspect]
     Indication: MYOCARDIAL INFARCTION
     Dosage: 20 MG
  3. MIRALAX [Suspect]
     Indication: COLONOSCOPY
     Dosage: 238 GM; PO
     Route: 048
     Dates: start: 20110203, end: 20110204
  4. ASPIRIN [Concomitant]
  5. ISOSORBIDE DINITRATE [Concomitant]
  6. METOPROLOL [Concomitant]

REACTIONS (6)
  - PRURITUS [None]
  - SWELLING [None]
  - SWOLLEN TONGUE [None]
  - EYELID OEDEMA [None]
  - RASH [None]
  - OVERDOSE [None]
